FAERS Safety Report 7653154-8 (Version None)
Quarter: 2011Q3

REPORT INFORMATION
  Report Type: 
  Country: None (occurrence: None)
  Receive Date: 20110803
  Receipt Date: 20110725
  Transmission Date: 20111222
  Serious: Yes (Hospitalization)
  Sender: FDA-Public Use
  Company Number: US-NOVOPROD-331163

PATIENT
  Age: 15 Year
  Sex: Male
  Weight: 77 kg

DRUGS (16)
  1. SOLU-MEDROL [Concomitant]
     Dosage: 750 MG, EVERY 2 WEEKS
     Route: 042
  2. ORENCIA [Concomitant]
     Dosage: 750 MG, EVERY MONTH
     Route: 042
  3. DAILY MULTIVITAMIN [Concomitant]
     Dosage: 1 TAB, QD (QS FOR 1 MONTH)
     Route: 048
  4. PLAQUENIL [Concomitant]
     Dosage: 300 MG, QD
     Route: 048
  5. MIRALAX [Concomitant]
     Indication: CONSTIPATION
     Dosage: 17 G, PRN
     Route: 048
  6. NORDITROPIN FLEXPRO [Suspect]
     Indication: FAILURE TO THRIVE
     Dosage: 3 MG, QD
     Dates: start: 20110309, end: 20110316
  7. ZOVIRAX                            /00587301/ [Concomitant]
     Indication: STOMATITIS
     Dosage: 200 MG, PRN
     Route: 048
  8. DDAVP [Concomitant]
     Dosage: 0.1 MG, QD (AT NIGHT)
     Route: 048
  9. FLONASE [Concomitant]
     Dosage: 1 SPRAY EACH NOSTRIL (50 MCG/ACT), QD (QS X 30 DAYS)
     Route: 045
  10. METHOTREXATE [Concomitant]
     Dosage: UNK
     Dates: end: 20110301
  11. ZYRTEC [Concomitant]
     Dosage: 10 MG, QD
     Route: 048
  12. DDAVP [Concomitant]
     Dosage: 0.15 MG, QD (IN THE MONRING)
     Route: 048
  13. COZAAR [Concomitant]
     Dosage: 25 MG, QD
     Route: 048
  14. ASPIRIN [Concomitant]
     Dosage: 1 TAB, QD
     Route: 048
  15. CELEBREX [Concomitant]
     Dosage: 1 CAPS, BID (FOR 1 MONTH)
     Route: 048
  16. PRILOSEC [Concomitant]
     Dosage: 20 MG, BID
     Route: 048

REACTIONS (2)
  - PAROTITIS [None]
  - SYSTEMIC LUPUS ERYTHEMATOSUS [None]
